FAERS Safety Report 9562693 (Version 2)
Quarter: 2013Q4

REPORT INFORMATION
  Report Type: Spontaneous
  Country: US (occurrence: US)
  Receive Date: 20130927
  Receipt Date: 20131104
  Transmission Date: 20140711
  Serious: No
  Sender: FDA-Public Use
  Company Number: US-PFIZER INC-2013272711

PATIENT
  Age: 55 Year
  Sex: Male
  Weight: 84.81 kg

DRUGS (4)
  1. TOVIAZ [Suspect]
     Indication: NOCTURIA
     Dosage: 1.8 MG, DAILY
     Route: 048
     Dates: start: 201308
  2. DETROL LA [Suspect]
     Indication: NOCTURIA
     Dosage: UNK
  3. PROGRAF [Concomitant]
     Indication: CROHN^S DISEASE
     Dosage: 4 G, 2X/DAY
  4. LEVOTHYROXINE [Concomitant]
     Indication: THYROID DISORDER
     Dosage: 1 MG, DAILY

REACTIONS (1)
  - Restless legs syndrome [Recovered/Resolved]
